FAERS Safety Report 5777954-4 (Version None)
Quarter: 2008Q2

REPORT INFORMATION
  Report Type: 
  Country: None (occurrence: None)
  Receive Date: 20080618
  Receipt Date: 20080618
  Transmission Date: 20081010
  Serious: No
  Sender: FDA-Public Use
  Company Number: None

PATIENT
  Sex: Female

DRUGS (1)
  1. PRED FORTE [Suspect]
     Indication: IRITIS
     Dosage: EVERY Q 2 HOURS X 48 HOURS THEN QID THEN BID
     Dates: start: 20010405

REACTIONS (2)
  - IRITIS [None]
  - PHARMACEUTICAL PRODUCT COMPLAINT [None]
